FAERS Safety Report 13754172 (Version 1)
Quarter: 2017Q3

REPORT INFORMATION
  Report Type: Report from Study
  Country: None (occurrence: BR)
  Receive Date: 20170714
  Receipt Date: 20170714
  Transmission Date: 20171127
  Serious: Yes (Death, Hospitalization, Other)
  Sender: FDA-Public Use
  Company Number: BR-ABBVIE-17K-020-2037032-00

PATIENT
  Sex: Female
  Weight: 73 kg

DRUGS (1)
  1. HUMIRA [Suspect]
     Active Substance: ADALIMUMAB
     Indication: PSORIATIC ARTHROPATHY
     Route: 058
     Dates: start: 20141024, end: 20170101

REACTIONS (3)
  - Urinary tract infection [Not Recovered/Not Resolved]
  - Medical induction of coma [Unknown]
  - Infection [Fatal]

NARRATIVE: CASE EVENT DATE: 2017
